FAERS Safety Report 5625130-8 (Version None)
Quarter: 2008Q1

REPORT INFORMATION
  Report Type: 
  Country: None (occurrence: None)
  Receive Date: 20080213
  Receipt Date: 20080122
  Transmission Date: 20080703
  Serious: No
  Sender: FDA-Public Use
  Company Number: US-BOEHRINGER INGELHEIM GMBH, GERMANY-2008-BP-01021BP

PATIENT
  Age: 74 Year
  Sex: Male

DRUGS (1)
  1. PERSANTINE [Suspect]

REACTIONS (3)
  - ASTHENIA [None]
  - NAUSEA [None]
  - RASH [None]
